FAERS Safety Report 10158682 (Version 2)
Quarter: 2014Q2

REPORT INFORMATION
  Report Type: Report from Study
  Country: FR (occurrence: FR)
  Receive Date: 20140508
  Receipt Date: 20140619
  Transmission Date: 20141212
  Serious: Yes (Hospitalization)
  Sender: FDA-Public Use
  Company Number: FR-BIOGENIDEC-2014BI041128

PATIENT
  Age: 40 Year
  Sex: Male
  Weight: 75 kg

DRUGS (3)
  1. TYSABRI [Suspect]
     Indication: MULTIPLE SCLEROSIS
     Route: 042
     Dates: start: 20080321
  2. DANTROLENE [Concomitant]
     Indication: MUSCLE SPASTICITY
     Route: 048
     Dates: start: 201207
  3. PARACETAMOL [Concomitant]
     Indication: PAIN

REACTIONS (2)
  - Peritonitis [Recovered/Resolved]
  - Duodenal ulcer perforation [Recovered/Resolved]
